FAERS Safety Report 9343692 (Version 1)
Quarter: 2013Q2

REPORT INFORMATION
  Report Type: Spontaneous
  Country: IE (occurrence: None)
  Receive Date: 20130610
  Receipt Date: 20130610
  Transmission Date: 20140414
  Serious: Yes (Life-Threatening, Other)
  Sender: FDA-Public Use
  Company Number: 1672263

PATIENT
  Age: 77 Year
  Sex: Male
  Weight: 65 kg

DRUGS (6)
  1. TOBRAMYCIN AND DEXAMETHASONE [Suspect]
     Indication: SEDATION
     Dosage: 0.7 MCG/KG/HR - 1.4 MCG/KG/HR, UNKNOWN, 6 HOURS, INTRAVENOUS (NOT OTHEWISE SPECIFIED)
     Route: 042
     Dates: start: 20121102
  2. AMIODARONE [Suspect]
     Indication: PRODUCT USED FOR UNKNOWN INDICATION
  3. INSULIN [Concomitant]
  4. ESOMEPRAZOLE [Concomitant]
  5. CLEXANE [Concomitant]
  6. TAZOCIN [Suspect]

REACTIONS (3)
  - Drug interaction [None]
  - Bradycardia [None]
  - Blood pressure systolic decreased [None]
